FAERS Safety Report 5066511-3 (Version None)
Quarter: 2006Q3

REPORT INFORMATION
  Report Type: 
  Country: None (occurrence: None)
  Receive Date: 20060801
  Receipt Date: 20060214
  Transmission Date: 20061208
  Serious: Yes (Death, Hospitalization)
  Sender: FDA-Public Use
  Company Number: FR-BAYER-200610162BFR

PATIENT
  Age: 67 Year
  Sex: Female
  Weight: 76 kg

DRUGS (5)
  1. SORAFENIB [Suspect]
     Indication: RENAL CELL CARCINOMA STAGE UNSPECIFIED
     Dosage: TOTAL DAILY DOSE: 800 MG  UNIT DOSE: 200 MG
     Route: 048
     Dates: start: 20060210, end: 20060213
  2. RIVOTRIL [Concomitant]
     Indication: PROPHYLAXIS
     Route: 048
     Dates: start: 20040101, end: 20060217
  3. DAFALGAN [Concomitant]
     Indication: PAIN
     Route: 048
     Dates: start: 20040101, end: 20060217
  4. COAPROVEL [Concomitant]
     Indication: HYPERTENSION
     Route: 048
     Dates: start: 20050801, end: 20060217
  5. ZOMETA [Concomitant]
     Indication: HYPERCALCAEMIA
     Dates: start: 20060209, end: 20060209

REACTIONS (4)
  - CYTOLYTIC HEPATITIS [None]
  - OLIGURIA [None]
  - RENAL FAILURE [None]
  - RETROPERITONEAL HAEMORRHAGE [None]
